FAERS Safety Report 7705087-6 (Version None)
Quarter: 2011Q3

REPORT INFORMATION
  Report Type: 
  Country: None (occurrence: None)
  Receive Date: 20110823
  Receipt Date: 20100930
  Transmission Date: 20111222
  Serious: Yes (Other)
  Sender: FDA-Public Use
  Company Number: US-AMGEN-US275344

PATIENT
  Age: 30 Year
  Sex: Male
  Weight: 146.2 kg

DRUGS (1)
  1. ETANERCEPT [Suspect]
     Indication: PSORIASIS
     Dosage: 50 MG, QWK
     Route: 058
     Dates: start: 20070525, end: 20080418

REACTIONS (1)
  - TUBERCULIN TEST POSITIVE [None]
